FAERS Safety Report 18311897 (Version 1)
Quarter: 2020Q3

REPORT INFORMATION
  Report Type: Spontaneous
  Country: CA (occurrence: CA)
  Receive Date: 20200925
  Receipt Date: 20200925
  Transmission Date: 20201103
  Serious: Yes (Other)
  Sender: FDA-Public Use
  Company Number: CA-ACCORD-202269

PATIENT
  Age: 58 Year
  Sex: Male
  Weight: 98 kg

DRUGS (22)
  1. APIXABAN [Concomitant]
     Active Substance: APIXABAN
  2. IRON [Concomitant]
     Active Substance: IRON
  3. FUROSEMIDE. [Concomitant]
     Active Substance: FUROSEMIDE
  4. METFORMIN [Concomitant]
     Active Substance: METFORMIN HYDROCHLORIDE
  5. FLUOROURACIL. [Concomitant]
     Active Substance: FLUOROURACIL
     Dosage: 5?FU
  6. EMPAGLIFLOZIN [Concomitant]
     Active Substance: EMPAGLIFLOZIN
     Dosage: LINAGLIPTIN
  7. ENTRESTO [Concomitant]
     Active Substance: SACUBITRIL\VALSARTAN
     Dosage: STRENGTH: 97 MG/103 MG
  8. ATROPINE. [Concomitant]
     Active Substance: ATROPINE
  9. CLOPIDOGREL [Concomitant]
     Active Substance: CLOPIDOGREL BISULFATE
  10. DEXAMETHASONE. [Concomitant]
     Active Substance: DEXAMETHASONE
     Dosage: LIQUID INTRA? ARTICULAR
     Route: 014
  11. ONDANSETRON [Concomitant]
     Active Substance: ONDANSETRON
  12. EPLERENONE. [Concomitant]
     Active Substance: EPLERENONE
  13. INSULIN LISPRO/INSULIN LISPRO PROTAMINE SUSPE [Concomitant]
     Active Substance: INSULIN LISPRO
  14. ROSUVASTATIN/ROSUVASTATIN CALCIUM [Concomitant]
     Active Substance: ROSUVASTATIN CALCIUM
  15. IRINOTECAN [Suspect]
     Active Substance: IRINOTECAN
     Indication: COLON CANCER METASTATIC
     Dosage: SOLUTION INTRAVENOUS
     Route: 042
  16. BEVACIZUMAB. [Suspect]
     Active Substance: BEVACIZUMAB
     Indication: COLON CANCER METASTATIC
     Route: 042
  17. BISOPROLOL [Concomitant]
     Active Substance: BISOPROLOL
  18. LOPERAMIDE [Concomitant]
     Active Substance: LOPERAMIDE
  19. DIPHENHYDRAMINE. [Concomitant]
     Active Substance: DIPHENHYDRAMINE
  20. LANSOPRAZOLE. [Concomitant]
     Active Substance: LANSOPRAZOLE
  21. PROCHLORPERAZINE. [Concomitant]
     Active Substance: PROCHLORPERAZINE
  22. VENLAFAXINE/VENLAFAXINE HYDROCHLORIDE [Concomitant]
     Active Substance: VENLAFAXINE HYDROCHLORIDE

REACTIONS (6)
  - Product dose omission issue [Unknown]
  - Dehydration [Unknown]
  - Diarrhoea [Unknown]
  - Pyrexia [Unknown]
  - Atrial fibrillation [Unknown]
  - Malaise [Unknown]
